FAERS Safety Report 23639629 (Version 1)
Quarter: 2024Q1

REPORT INFORMATION
  Report Type: Spontaneous
  Country: US (occurrence: US)
  Receive Date: 20240316
  Receipt Date: 20240316
  Transmission Date: 20240409
  Serious: No
  Sender: FDA-Public Use
  Company Number: US-002147023-NVSC2024US057067

PATIENT
  Sex: Male

DRUGS (2)
  1. TAFINLAR [Suspect]
     Active Substance: DABRAFENIB MESYLATE
     Indication: Malignant melanoma
     Dosage: 150 MG, Q12H
     Route: 048
     Dates: start: 202402
  2. MEKINIST [Suspect]
     Active Substance: TRAMETINIB DIMETHYL SULFOXIDE
     Indication: Malignant melanoma
     Dosage: 2 MG, QD
     Route: 048
     Dates: start: 202402

REACTIONS (13)
  - Mental status changes [Unknown]
  - Oedema peripheral [Unknown]
  - Nausea [Unknown]
  - Chills [Unknown]
  - Headache [Unknown]
  - Arthralgia [Unknown]
  - Cough [Unknown]
  - Fatigue [Unknown]
  - Depression [Unknown]
  - Depressed mood [Unknown]
  - Pain [Unknown]
  - Asthenia [Unknown]
  - Apathy [Unknown]
